FAERS Safety Report 17060627 (Version 2)
Quarter: 2025Q2

REPORT INFORMATION
  Report Type: Spontaneous
  Country: PT (occurrence: PT)
  Receive Date: 20191121
  Receipt Date: 20250425
  Transmission Date: 20250716
  Serious: Yes (Congenital Anomaly, Other)
  Sender: MYLAN
  Company Number: PT-UCBSA-2016007842

PATIENT
  Sex: Female

DRUGS (1)
  1. LEVETIRACETAM [Suspect]
     Active Substance: LEVETIRACETAM
     Indication: Post-traumatic epilepsy

REACTIONS (3)
  - Amniotic band syndrome [Not Recovered/Not Resolved]
  - Hypotonia neonatal [Unknown]
  - Foetal exposure during pregnancy [Recovered/Resolved]
